FAERS Safety Report 6867416-5 (Version None)
Quarter: 2010Q3

REPORT INFORMATION
  Report Type: 
  Country: None (occurrence: None)
  Receive Date: 20100722
  Receipt Date: 20100720
  Transmission Date: 20110219
  Serious: Yes (Hospitalization)
  Sender: FDA-Public Use
  Company Number: US-BRISTOL-MYERS SQUIBB COMPANY-15197130

PATIENT
  Sex: Male

DRUGS (3)
  1. ERBITUX [Suspect]
     Indication: SALIVARY GLAND CANCER
     Dosage: EVERY THURSDAY
     Dates: start: 20071001
  2. TAXOL [Suspect]
     Indication: SALIVARY GLAND CANCER
  3. CARBOPLATIN [Suspect]
     Indication: SALIVARY GLAND CANCER

REACTIONS (3)
  - RASH ERYTHEMATOUS [None]
  - SKIN DISORDER [None]
  - STAPHYLOCOCCAL INFECTION [None]
